FAERS Safety Report 8518710-3 (Version None)
Quarter: 2012Q3

REPORT INFORMATION
  Report Type: 
  Country: None (occurrence: None)
  Receive Date: 20120718
  Receipt Date: 20110615
  Transmission Date: 20120928
  Serious: No
  Sender: FDA-Public Use
  Company Number: US-BRISTOL-MYERS SQUIBB COMPANY-15835689

PATIENT
  Age: 76 Year
  Sex: Female

DRUGS (9)
  1. ATROVENT [Concomitant]
  2. DILTIAZEM HCL [Concomitant]
  3. COZAAR [Concomitant]
  4. ALDACTONE [Concomitant]
  5. PLAQUENIL [Concomitant]
  6. CYMBALTA [Concomitant]
  7. WARFARIN SODIUM [Suspect]
  8. POTASSIUM CHLORIDE [Concomitant]
  9. ADVAIR DISKUS 100/50 [Concomitant]

REACTIONS (1)
  - BLOOD VISCOSITY INCREASED [None]
